FAERS Safety Report 13138203 (Version 1)
Quarter: 2017Q1

REPORT INFORMATION
  Report Type: Spontaneous
  Country: US (occurrence: US)
  Receive Date: 20170123
  Receipt Date: 20170123
  Transmission Date: 20170428
  Serious: No
  Sender: FDA-Public Use
  Company Number: US-UNITED THERAPEUTICS-UNT-2016-009280

PATIENT
  Age: 59 Year
  Sex: Male
  Weight: 72.56 kg

DRUGS (2)
  1. REVATIO [Concomitant]
     Active Substance: SILDENAFIL CITRATE
     Indication: PRODUCT USED FOR UNKNOWN INDICATION
  2. REMODULIN [Suspect]
     Active Substance: TREPROSTINIL
     Indication: PULMONARY ARTERIAL HYPERTENSION
     Dosage: 0.06 ?G/KG, CONTINUING
     Route: 058
     Dates: start: 20081027

REACTIONS (10)
  - Headache [Unknown]
  - Drug dose omission [Unknown]
  - Nasal congestion [Unknown]
  - Respiratory tract infection [Unknown]
  - Cough [Unknown]
  - Condition aggravated [Not Recovered/Not Resolved]
  - Nasopharyngitis [Unknown]
  - Bronchitis [Unknown]
  - Pyrexia [Unknown]
  - Infusion site vesicles [Unknown]

NARRATIVE: CASE EVENT DATE: 201606
